FAERS Safety Report 6424680-4 (Version None)
Quarter: 2009Q4

REPORT INFORMATION
  Report Type: 
  Country: None (occurrence: None)
  Receive Date: 20091102
  Receipt Date: 20091102
  Transmission Date: 20100525
  Serious: No
  Sender: FDA-Public Use
  Company Number: None

PATIENT
  Age: 77 Year
  Sex: Male

DRUGS (1)
  1. HEPARIN [Suspect]
     Dosage: 5000 UNITS BID SQ
     Route: 058
     Dates: start: 20081003, end: 20081016

REACTIONS (1)
  - THROMBOCYTOPENIA [None]
